FAERS Safety Report 8573373-6 (Version None)
Quarter: 2012Q3

REPORT INFORMATION
  Report Type: 
  Country: None (occurrence: None)
  Receive Date: 20120806
  Receipt Date: 20120730
  Transmission Date: 20120928
  Serious: Yes (Other)
  Sender: FDA-Public Use
  Company Number: US-PFIZER INC-2012164784

PATIENT
  Sex: Female

DRUGS (3)
  1. LYRICA [Suspect]
     Dosage: UNK
  2. GABAPENTIN [Suspect]
     Dosage: 300 MG, UNK
  3. XALATAN [Suspect]
     Dosage: UNK

REACTIONS (3)
  - HYPERTENSION [None]
  - CARDIAC FAILURE CONGESTIVE [None]
  - HEARING IMPAIRED [None]
